FAERS Safety Report 9947375 (Version 1)
Quarter: 2014Q1

REPORT INFORMATION
  Report Type: Report from Study
  Country: US (occurrence: US)
  Receive Date: 20140303
  Receipt Date: 20140303
  Transmission Date: 20141002
  Serious: No
  Sender: FDA-Public Use
  Company Number: US-ABBVIE-13P-163-1064357-00

PATIENT
  Age: 51 Year
  Sex: Female

DRUGS (8)
  1. HUMIRA [Suspect]
     Indication: CROHN^S DISEASE
     Dates: start: 20130127, end: 20130127
  2. HUMIRA [Suspect]
     Dates: start: 20130210, end: 20130210
  3. HUMIRA [Suspect]
  4. ZEGERID [Concomitant]
     Indication: DYSPEPSIA
     Dosage: DAILY
  5. ENTOCORT [Concomitant]
     Indication: CROHN^S DISEASE
     Dosage: EVERY MORNING
  6. MULTIVITAMINS [Concomitant]
     Indication: PRODUCT USED FOR UNKNOWN INDICATION
     Dosage: DAILY
  7. TYLENOL [Concomitant]
     Indication: PRODUCT USED FOR UNKNOWN INDICATION
  8. IMURAN [Concomitant]
     Indication: CROHN^S DISEASE
     Dosage: 3 TABLETS DAILY
     Dates: start: 20130127

REACTIONS (3)
  - Mobility decreased [Recovered/Resolved]
  - Injection site pain [Recovered/Resolved]
  - Injection site pain [Recovered/Resolved]
